FAERS Safety Report 25463518 (Version 1)
Quarter: 2025Q2

REPORT INFORMATION
  Report Type: Spontaneous
  Country: FR (occurrence: FR)
  Receive Date: 20250620
  Receipt Date: 20250620
  Transmission Date: 20250717
  Serious: Yes (Life-Threatening)
  Sender: ELI LILLY AND COMPANY
  Company Number: None

PATIENT
  Age: 54 Year
  Sex: Male
  Weight: 64 kg

DRUGS (2)
  1. HUMALOG [Suspect]
     Active Substance: INSULIN LISPRO
     Indication: Intentional overdose
     Route: 058
     Dates: start: 20250509, end: 20250509
  2. LANTUS [Suspect]
     Active Substance: INSULIN GLARGINE
     Indication: Intentional overdose
     Route: 058
     Dates: start: 20250509, end: 20250509

REACTIONS (3)
  - Poisoning deliberate [Recovered/Resolved]
  - Hypoglycaemic coma [Recovered/Resolved]
  - Intentional overdose [Unknown]

NARRATIVE: CASE EVENT DATE: 20250509
